FAERS Safety Report 21257127 (Version 1)
Quarter: 2022Q3

REPORT INFORMATION
  Report Type: Other
  Country: GB (occurrence: GB)
  Receive Date: 20220826
  Receipt Date: 20220826
  Transmission Date: 20221026
  Serious: Yes (Death, Life-Threatening, Hospitalization)
  Sender: FDA-Public Use
  Company Number: GB-NOVOPROD-744817

PATIENT
  Age: 53 Year
  Sex: Male

DRUGS (4)
  1. SOMATROPIN [Suspect]
     Active Substance: SOMATROPIN
     Indication: Performance enhancing product use
     Dosage: 6-WEEKS ON AND 4-WEEKS OFF REGIME FOR OVER 20 YEARS
     Route: 065
  2. TESTOSTERONE [Suspect]
     Active Substance: TESTOSTERONE
     Indication: Performance enhancing product use
     Dosage: 6-WEEKS ON AND 4-WEEKS OFF REGIME FOR OVER 20 YEARS
     Route: 065
  3. LANSOPRAZOLE [Concomitant]
     Active Substance: LANSOPRAZOLE
  4. TAMSULOSIN [Concomitant]
     Active Substance: TAMSULOSIN
     Indication: Benign prostatic hyperplasia

REACTIONS (14)
  - Myocardial infarction [Fatal]
  - Focal segmental glomerulosclerosis [Recovering/Resolving]
  - Left ventricular hypertrophy [Unknown]
  - Hypercalcaemia [Recovering/Resolving]
  - Rhabdomyolysis [Unknown]
  - Renal impairment [Recovering/Resolving]
  - Aortic valve stenosis [Unknown]
  - Myositis [Recovering/Resolving]
  - Left ventricular failure [Unknown]
  - Coronary artery disease [Unknown]
  - Chronic kidney disease [Recovering/Resolving]
  - Acute kidney injury [Recovering/Resolving]
  - Constipation [Unknown]
  - Performance enhancing product use [Unknown]
